FAERS Safety Report 5567386-6 (Version None)
Quarter: 2007Q4

REPORT INFORMATION
  Report Type: 
  Country: None (occurrence: None)
  Receive Date: 20071130
  Receipt Date: 20070811
  Transmission Date: 20080405
  Serious: No
  Sender: FDA-Public Use
  Company Number: US200708002560

PATIENT
  Age: 84 Year
  Sex: Female
  Weight: 86.2 kg

DRUGS (3)
  1. BYETTA [Suspect]
     Indication: TYPE 2 DIABETES MELLITUS
     Dosage: 5 UG, 2/D, SUBCUTANEOUS
     Route: 058
     Dates: start: 20070808
  2. GLYBURIDE [Concomitant]
  3. LANTUS [Concomitant]

REACTIONS (4)
  - FEELING JITTERY [None]
  - RHINORRHOEA [None]
  - SNEEZING [None]
  - TREMOR [None]
